FAERS Safety Report 17485052 (Version 2)
Quarter: 2020Q2

REPORT INFORMATION
  Report Type: Spontaneous
  Country: US (occurrence: US)
  Receive Date: 20200302
  Receipt Date: 20200430
  Transmission Date: 20200713
  Serious: Yes (Hospitalization)
  Sender: FDA-Public Use
  Company Number: US-NOVOPROD-715344

PATIENT
  Age: 63 Year
  Sex: Male

DRUGS (1)
  1. TRESIBA [Suspect]
     Active Substance: INSULIN DEGLUDEC
     Indication: PRODUCT USED FOR UNKNOWN INDICATION
     Dosage: 34 UNITS
     Route: 058

REACTIONS (3)
  - Feeling abnormal [Unknown]
  - Incorrect dose administered by device [Unknown]
  - Device delivery system issue [Unknown]
